FAERS Safety Report 5455359-3 (Version None)
Quarter: 2007Q3

REPORT INFORMATION
  Report Type: 
  Country: None (occurrence: None)
  Receive Date: 20070918
  Receipt Date: 20070914
  Transmission Date: 20080115
  Serious: Yes (Other)
  Sender: FDA-Public Use
  Company Number: US-BRISTOL-MYERS SQUIBB COMPANY-13909163

PATIENT
  Age: 71 Year
  Sex: Male

DRUGS (9)
  1. PACLITAXEL [Suspect]
     Indication: METASTATIC NEOPLASM
  2. CARBOPLATIN [Suspect]
     Indication: METASTATIC NEOPLASM
  3. MEGESTROL ACETATE [Suspect]
     Indication: METASTATIC NEOPLASM
  4. CAPECITABINE [Suspect]
     Indication: METASTATIC NEOPLASM
  5. RADIATION THERAPY [Suspect]
     Indication: METASTATIC NEOPLASM
  6. OXYCODONE HCL [Concomitant]
     Indication: PAIN
  7. ESCITALOPRAM OXALATE [Concomitant]
  8. LEVOTHYROXINE SODIUM [Concomitant]
  9. FLUDROCORTISONE ACETATE [Concomitant]

REACTIONS (10)
  - ANDROGEN DEFICIENCY [None]
  - BLOOD CORTISOL DECREASED [None]
  - BLOOD TESTOSTERONE DECREASED [None]
  - BLOOD THYROID STIMULATING HORMONE DECREASED [None]
  - DYSPNOEA EXERTIONAL [None]
  - ERYTHEMA [None]
  - FATIGUE [None]
  - HYPERHIDROSIS [None]
  - NOCTURIA [None]
  - SOMNOLENCE [None]
